FAERS Safety Report 16077943 (Version 1)
Quarter: 2019Q1

REPORT INFORMATION
  Report Type: Spontaneous
  Country: FR (occurrence: FR)
  Receive Date: 20190315
  Receipt Date: 20190315
  Transmission Date: 20190418
  Serious: Yes (Hospitalization, Other)
  Sender: FDA-Public Use
  Company Number: FR-PFIZER INC-2019109102

PATIENT
  Age: 25477 Day
  Sex: Female

DRUGS (4)
  1. FASLODEX [Suspect]
     Active Substance: FULVESTRANT
     Indication: BREAST CANCER FEMALE
     Dosage: 2 DF, WEEKLY
     Route: 030
     Dates: start: 201701, end: 201801
  2. FASLODEX [Suspect]
     Active Substance: FULVESTRANT
     Dosage: 2 DF, MONTHLY
     Route: 030
     Dates: start: 201801, end: 201901
  3. PALBOCICLIB [Suspect]
     Active Substance: PALBOCICLIB
     Route: 048
     Dates: start: 201901
  4. AROMASIN [Concomitant]
     Active Substance: EXEMESTANE
     Dates: start: 201901

REACTIONS (2)
  - Chronic kidney disease [Unknown]
  - Tumour marker increased [Unknown]
